FAERS Safety Report 6256943-X (Version None)
Quarter: 2009Q3

REPORT INFORMATION
  Report Type: 
  Country: None (occurrence: None)
  Receive Date: 20090706
  Receipt Date: 20090622
  Transmission Date: 20100115
  Serious: Yes (Other)
  Sender: FDA-Public Use
  Company Number: CA-JNJFOC-20090700839

PATIENT
  Age: 17 Year
  Sex: Male

DRUGS (4)
  1. RALIVIA [Suspect]
     Route: 048
  2. RALIVIA [Suspect]
     Indication: DRUG USE FOR UNKNOWN INDICATION
     Route: 048
  3. WELLBUTRIN XL [Suspect]
     Indication: DRUG USE FOR UNKNOWN INDICATION
     Route: 048
  4. QUETIAPINE FUMARATE [Concomitant]
     Indication: DRUG USE FOR UNKNOWN INDICATION

REACTIONS (7)
  - CONTUSION [None]
  - CONVULSION [None]
  - EXCORIATION [None]
  - HAEMORRHAGE [None]
  - INTENTIONAL OVERDOSE [None]
  - SWELLING [None]
  - URINARY RETENTION [None]
